FAERS Safety Report 11810883 (Version 4)
Quarter: 2016Q2

REPORT INFORMATION
  Report Type: Spontaneous
  Country: US (occurrence: US)
  Receive Date: 20151208
  Receipt Date: 20160525
  Transmission Date: 20160815
  Serious: Yes (Death, Hospitalization)
  Sender: FDA-Public Use
  Company Number: US-ACTELION-A-US2015-128303

PATIENT
  Age: 60 Year
  Sex: Female

DRUGS (3)
  1. ADCIRCA [Concomitant]
     Active Substance: TADALAFIL
  2. VELETRI [Suspect]
     Active Substance: EPOPROSTENOL
     Indication: PULMONARY HYPERTENSION
     Dosage: 52.5 NG/KG, PER MIN
     Route: 042
     Dates: start: 20120928, end: 20160512
  3. LETAIRIS [Concomitant]
     Active Substance: AMBRISENTAN

REACTIONS (12)
  - Pneumonia [Unknown]
  - Abdominal pain [Unknown]
  - Memory impairment [Unknown]
  - Death [Fatal]
  - Pain in extremity [Unknown]
  - Delirium [Unknown]
  - Seizure [Unknown]
  - Decubitus ulcer [Unknown]
  - Acute respiratory failure [Unknown]
  - Muscular weakness [Unknown]
  - Gait disturbance [Unknown]
  - Constipation [Unknown]

NARRATIVE: CASE EVENT DATE: 20160512
